FAERS Safety Report 6559179-8 (Version None)
Quarter: 2010Q1

REPORT INFORMATION
  Report Type: 
  Country: None (occurrence: None)
  Receive Date: 20100129
  Receipt Date: 20090917
  Transmission Date: 20100710
  Serious: No
  Sender: FDA-Public Use
  Company Number: US-ABBOTT-09P-163-0570746-00

PATIENT
  Sex: Female
  Weight: 113.5 kg

DRUGS (14)
  1. HUMIRA [Suspect]
     Indication: RHEUMATOID ARTHRITIS
     Route: 058
     Dates: start: 20070101, end: 20080101
  2. HUMIRA [Suspect]
     Route: 058
     Dates: start: 20080331
  3. PREDNISONE [Concomitant]
     Indication: DRUG USE FOR UNKNOWN INDICATION
     Route: 048
     Dates: start: 20080101
  4. PREDNISONE [Concomitant]
     Route: 048
     Dates: start: 20080101, end: 20080101
  5. PREDNISONE [Concomitant]
     Route: 048
  6. PREDNISONE [Concomitant]
     Route: 048
     Dates: end: 20080101
  7. CELEBREX [Concomitant]
     Indication: DRUG USE FOR UNKNOWN INDICATION
  8. UNNAMED MEDICATION [Concomitant]
     Indication: HYPERSENSITIVITY
     Route: 050
  9. UNNAMED MEDICATION [Concomitant]
     Route: 048
  10. LISINOPRIL [Concomitant]
     Indication: HYPERTENSION
  11. AMLIDORIDE [Concomitant]
     Indication: HYPERTENSION
  12. PROBIOTICS [Concomitant]
     Indication: FUNGAL INFECTION
  13. METHOTREXATE [Concomitant]
     Indication: DRUG USE FOR UNKNOWN INDICATION
     Dates: start: 20080731
  14. PAXIL [Concomitant]
     Indication: DRUG USE FOR UNKNOWN INDICATION

REACTIONS (11)
  - ASTHENIA [None]
  - DERMAL CYST [None]
  - EMOTIONAL DISORDER [None]
  - FATIGUE [None]
  - FURUNCLE [None]
  - HEADACHE [None]
  - MALAISE [None]
  - RHEUMATOID ARTHRITIS [None]
  - STRESS [None]
  - SUICIDAL IDEATION [None]
  - TREMOR [None]
